FAERS Safety Report 17459121 (Version 1)
Quarter: 2020Q1

REPORT INFORMATION
  Report Type: Spontaneous
  Country: US (occurrence: US)
  Receive Date: 20200225
  Receipt Date: 20200225
  Transmission Date: 20200409
  Serious: No
  Sender: FDA-Public Use
  Company Number: US-IGSA-SR10009010

PATIENT
  Age: 57 Year
  Sex: Male
  Weight: 102 kg

DRUGS (21)
  1. PROLASTIN-C LIQUID [Suspect]
     Active Substance: .ALPHA.1-PROTEINASE INHIBITOR HUMAN
     Dosage: 6486 MG, Q.WK.
     Route: 042
     Dates: start: 20190829
  2. ASPIRIN                            /00002701/ [Concomitant]
     Active Substance: ASPIRIN
     Indication: PRODUCT USED FOR UNKNOWN INDICATION
     Dosage: 325 MG, QD
     Route: 065
  3. SYMBICORT [Concomitant]
     Active Substance: BUDESONIDE\FORMOTEROL FUMARATE DIHYDRATE
     Indication: PRODUCT USED FOR UNKNOWN INDICATION
     Dosage: 2 UNK, BID
     Route: 050
  4. PROLASTIN-C LIQUID [Suspect]
     Active Substance: .ALPHA.1-PROTEINASE INHIBITOR HUMAN
     Indication: ALPHA-1 ANTI-TRYPSIN DEFICIENCY
     Dosage: 6486 MG, Q.WK.
     Route: 042
     Dates: start: 20190815
  5. HYDRALAZINE [Concomitant]
     Active Substance: HYDRALAZINE HYDROCHLORIDE
     Indication: PRODUCT USED FOR UNKNOWN INDICATION
     Dosage: 37.5 MG, TID
     Route: 065
  6. FUROSEMIDE. [Concomitant]
     Active Substance: FUROSEMIDE
     Indication: PRODUCT USED FOR UNKNOWN INDICATION
     Dosage: 40 MG, QD
     Route: 065
  7. MONTELUKAST [Concomitant]
     Active Substance: MONTELUKAST SODIUM
     Indication: PRODUCT USED FOR UNKNOWN INDICATION
     Dosage: 10 MG, QD
     Route: 065
  8. PROLASTIN-C LIQUID [Suspect]
     Active Substance: .ALPHA.1-PROTEINASE INHIBITOR HUMAN
     Dosage: 6486 MG, Q.WK.
     Route: 042
     Dates: start: 20191003
  9. IBUPROFEN. [Concomitant]
     Active Substance: IBUPROFEN
     Indication: PREMEDICATION
     Dosage: UNK
     Route: 048
     Dates: start: 20190829
  10. EFFEXOR [Concomitant]
     Active Substance: VENLAFAXINE HYDROCHLORIDE
     Indication: PRODUCT USED FOR UNKNOWN INDICATION
     Dosage: 300 MG, QD
     Route: 065
  11. BENADRYL [Concomitant]
     Active Substance: DIPHENHYDRAMINE HYDROCHLORIDE
     Indication: PREMEDICATION
     Dosage: UNK
     Route: 048
     Dates: start: 20190829
  12. ALBUTEROL                          /00139501/ [Concomitant]
     Active Substance: ALBUTEROL
  13. SIMVASTATIN. [Concomitant]
     Active Substance: SIMVASTATIN
     Indication: PRODUCT USED FOR UNKNOWN INDICATION
     Dosage: 20 MG, UNK
     Route: 065
  14. PRAZOSIN. [Concomitant]
     Active Substance: PRAZOSIN
     Indication: PRODUCT USED FOR UNKNOWN INDICATION
     Dosage: 2 MG, TID
     Route: 065
  15. METFORMIN [Concomitant]
     Active Substance: METFORMIN HYDROCHLORIDE
     Indication: PRODUCT USED FOR UNKNOWN INDICATION
     Dosage: 500 MG, BID
     Route: 065
  16. AMLODIPINE [Concomitant]
     Active Substance: AMLODIPINE BESYLATE
     Indication: PRODUCT USED FOR UNKNOWN INDICATION
     Dosage: 10 MG, QD
     Route: 065
  17. COREG [Concomitant]
     Active Substance: CARVEDILOL
     Indication: PRODUCT USED FOR UNKNOWN INDICATION
     Dosage: 25 MG, BID
     Route: 065
  18. SPIRIVA [Concomitant]
     Active Substance: TIOTROPIUM BROMIDE MONOHYDRATE
     Indication: PRODUCT USED FOR UNKNOWN INDICATION
     Dosage: 1 UNK, QD
     Route: 065
  19. WELLBUTRIN [Concomitant]
     Active Substance: BUPROPION HYDROCHLORIDE
     Indication: PRODUCT USED FOR UNKNOWN INDICATION
     Dosage: 300 MG, QD
     Route: 065
  20. PROLASTIN-C LIQUID [Suspect]
     Active Substance: .ALPHA.1-PROTEINASE INHIBITOR HUMAN
     Dosage: 6486 MG, Q.WK.
     Route: 042
     Dates: start: 20190822
  21. LOSARTAN. [Concomitant]
     Active Substance: LOSARTAN
     Indication: PRODUCT USED FOR UNKNOWN INDICATION
     Dosage: 100 MG, QD
     Route: 065

REACTIONS (11)
  - Dizziness [Recovered/Resolved]
  - Chills [Recovered/Resolved]
  - Myalgia [Recovered/Resolved]
  - Blood pressure decreased [Recovered/Resolved]
  - Hyperhidrosis [Recovering/Resolving]
  - Pyrexia [Recovering/Resolving]
  - Chest pain [Recovered/Resolved]
  - Pain [Recovered/Resolved]
  - Pallor [Recovered/Resolved]
  - Feeling abnormal [Recovered/Resolved]
  - Pollakiuria [Recovered/Resolved]

NARRATIVE: CASE EVENT DATE: 20190815
